FAERS Safety Report 9666914 (Version 1)
Quarter: 2013Q4

REPORT INFORMATION
  Report Type: Spontaneous
  Country: US (occurrence: None)
  Receive Date: 20131101
  Receipt Date: 20131101
  Transmission Date: 20140711
  Serious: Yes (Hospitalization)
  Sender: FDA-Public Use
  Company Number: None

PATIENT
  Age: 23 Year
  Sex: Female
  Weight: 65.1 kg

DRUGS (10)
  1. LITHIUM [Suspect]
     Indication: BIPOLAR DISORDER
     Route: 048
     Dates: end: 20110920
  2. ACYCLOVIR [Concomitant]
  3. AMLODIPINE [Concomitant]
  4. AMOXICILLIN/CLAVULANATE [Concomitant]
  5. HYDROMORPHONE [Concomitant]
  6. DRONABINOL [Concomitant]
  7. FLUCONAZOLE [Concomitant]
  8. ONDANSETRON [Concomitant]
  9. OXYCODONE [Concomitant]
  10. PROCHLORPERAZINE [Concomitant]

REACTIONS (8)
  - Nausea [None]
  - Diarrhoea [None]
  - Abdominal discomfort [None]
  - Grand mal convulsion [None]
  - Tongue biting [None]
  - Loss of consciousness [None]
  - Antipsychotic drug level increased [None]
  - Dehydration [None]
